FAERS Safety Report 5763796-2 (Version None)
Quarter: 2008Q2

REPORT INFORMATION
  Report Type: 
  Country: None (occurrence: None)
  Receive Date: 20080602
  Receipt Date: 20071203
  Transmission Date: 20081010
  Serious: Yes (Hospitalization)
  Sender: FDA-Public Use
  Company Number: 165457USA

PATIENT
  Age: 88 Year
  Sex: Female

DRUGS (8)
  1. BUMETANIDE [Suspect]
     Dosage: (2 MG)
     Dates: start: 20070701
  2. LEVOTHYROXINE SODIUM [Concomitant]
  3. CARVEDILOL [Concomitant]
  4. NITROGLYCERIN [Concomitant]
  5. CARTEOLOL HYDROCHLORIDE [Concomitant]
  6. POTASSIUM CHLORIDE [Concomitant]
  7. ALLOPURINOL [Concomitant]
  8. PANTOPRAZOLE SODIUM [Concomitant]

REACTIONS (2)
  - BACK PAIN [None]
  - DRUG EFFECT DECREASED [None]
